FAERS Safety Report 7788935-3 (Version None)
Quarter: 2011Q3

REPORT INFORMATION
  Report Type: 
  Country: None (occurrence: None)
  Receive Date: 20110930
  Receipt Date: 20110926
  Transmission Date: 20111222
  Serious: Yes (Death)
  Sender: FDA-Public Use
  Company Number: US-CELGENEUS-163-21880-11071406

PATIENT
  Sex: Male

DRUGS (6)
  1. LEVAQUIN [Concomitant]
     Dosage: 250 MILLIGRAM
     Route: 048
  2. OMEPRAZOLE [Concomitant]
     Dosage: 20 MILLIGRAM
     Route: 048
  3. HUMIRA [Concomitant]
     Indication: RHEUMATOID ARTHRITIS
     Route: 065
     Dates: start: 20080101, end: 20110401
  4. REVLIMID [Suspect]
     Dosage: 10 MILLIGRAM
     Route: 048
     Dates: start: 20110519, end: 20110625
  5. SPIRIVA HANDIHLR [Concomitant]
     Route: 065
  6. ARAVA [Concomitant]
     Indication: RHEUMATOID ARTHRITIS
     Route: 065
     Dates: start: 20060101, end: 20110301

REACTIONS (2)
  - MYELODYSPLASTIC SYNDROME [None]
  - LUNG INFECTION [None]
